FAERS Safety Report 4885381-7 (Version None)
Quarter: 2005Q4

REPORT INFORMATION
  Report Type: 
  Country: None (occurrence: None)
  Receive Date: 20051222
  Receipt Date: 20050314
  Transmission Date: 20060501
  Serious: Yes (Other)
  Sender: FDA-Public Use
  Company Number: 200502092

PATIENT
  Age: 73 Year
  Sex: Female

DRUGS (1)
  1. ELESTAT [Suspect]
     Indication: OCULAR HYPERAEMIA
     Dosage: 2 DROP QPM EYE

REACTIONS (2)
  - ABNORMAL DREAMS [None]
  - INSOMNIA [None]
